FAERS Safety Report 11060612 (Version 1)
Quarter: 2015Q2

REPORT INFORMATION
  Report Type: Spontaneous
  Country: US (occurrence: US)
  Receive Date: 20150423
  Receipt Date: 20150423
  Transmission Date: 20150821
  Serious: Yes (Other)
  Sender: FDA-Public Use
  Company Number: US-BAYER-2015-142994

PATIENT
  Age: 42 Year

DRUGS (1)
  1. BETASERON [Suspect]
     Active Substance: INTERFERON BETA-1B
     Indication: MULTIPLE SCLEROSIS
     Dosage: UNK
     Dates: start: 2003

REACTIONS (6)
  - Musculoskeletal stiffness [None]
  - Muscle tightness [None]
  - Spastic paralysis [None]
  - Chills [None]
  - Chills [None]
  - Muscle tightness [None]

NARRATIVE: CASE EVENT DATE: 201504
